FAERS Safety Report 4593864-2 (Version None)
Quarter: 2005Q1

REPORT INFORMATION
  Report Type: 
  Country: None (occurrence: None)
  Receive Date: 20050301
  Receipt Date: 20050203
  Transmission Date: 20050727
  Serious: Yes (Death)
  Sender: FDA-Public Use
  Company Number: US-ROCHE-394718

PATIENT
  Age: 46 Year
  Sex: Male
  Weight: 54 kg

DRUGS (1)
  1. XELODA [Suspect]
     Dosage: GIVEN FOR FIVE DAYS WITH TWO DAYS REST.
     Route: 048
     Dates: start: 20030930, end: 20040307

REACTIONS (5)
  - APPETITE DISORDER [None]
  - CARDIO-RESPIRATORY ARREST [None]
  - DISEASE PROGRESSION [None]
  - FATIGUE [None]
  - PANCREATIC CARCINOMA [None]
